FAERS Safety Report 8458362-4 (Version None)
Quarter: 2012Q2

REPORT INFORMATION
  Report Type: 
  Country: None (occurrence: None)
  Receive Date: 20120622
  Receipt Date: 20120613
  Transmission Date: 20120825
  Serious: Yes (Other)
  Sender: FDA-Public Use
  Company Number: NL-US-EMD SERONO, INC.-7073351

PATIENT
  Sex: Female
  Weight: 120 kg

DRUGS (6)
  1. DESOGESTREL AND ETHINYL ESTRADIOL [Suspect]
     Indication: CONTRACEPTION
     Route: 048
  2. IBUPROFEN [Concomitant]
     Indication: PROPHYLAXIS
     Dates: start: 20110606
  3. REBIF [Suspect]
     Indication: MULTIPLE SCLEROSIS
     Route: 058
     Dates: start: 20110606
  4. UNSPECIFIED CREAM [Concomitant]
     Indication: ADVERSE REACTION
  5. ACENOCOUMAROL [Concomitant]
     Indication: ANTICOAGULANT THERAPY
     Route: 048
     Dates: start: 20110501
  6. LEVONORGESTREL AND ETHINYL ESTRADIOL [Concomitant]
     Indication: CONTRACEPTION
     Route: 048

REACTIONS (7)
  - INJECTION SITE ERYTHEMA [None]
  - INJECTION SITE PRURITUS [None]
  - INJECTION SITE REACTION [None]
  - PARAESTHESIA [None]
  - INJECTION SITE PAIN [None]
  - HYPOAESTHESIA [None]
  - THROMBOSIS [None]
